FAERS Safety Report 17027968 (Version 1)
Quarter: 2019Q4

REPORT INFORMATION
  Report Type: Spontaneous
  Country: CA (occurrence: CA)
  Receive Date: 20191113
  Receipt Date: 20191113
  Transmission Date: 20200122
  Serious: Yes (Hospitalization, Other)
  Sender: FDA-Public Use
  Company Number: CA-PFIZER INC-2019482792

PATIENT
  Age: 58 Year
  Sex: Female

DRUGS (2)
  1. COLESTID [Suspect]
     Active Substance: COLESTIPOL HYDROCHLORIDE
     Dosage: 4 PACKAGES, DAILY, EVERY MORNING
     Route: 042
  2. COLESTIPOL [Concomitant]
     Active Substance: COLESTIPOL
     Dosage: UNK UNK, DAILY, BEFORE SLEEP

REACTIONS (14)
  - Drug ineffective [Unknown]
  - Palpitations [Recovered/Resolved]
  - Peripheral swelling [Recovered/Resolved]
  - Dizziness [Unknown]
  - Chest pain [Recovered/Resolved]
  - Pain in extremity [Recovered/Resolved]
  - Migraine [Recovering/Resolving]
  - Dyspnoea [Recovered/Resolved]
  - Facial pain [Recovered/Resolved]
  - Asthenia [Unknown]
  - Malaise [Unknown]
  - Condition aggravated [Unknown]
  - Headache [Recovering/Resolving]
  - Diarrhoea [Unknown]
